FAERS Safety Report 5902371-3 (Version None)
Quarter: 2008Q3

REPORT INFORMATION
  Report Type: 
  Country: None (occurrence: None)
  Receive Date: 20080925
  Receipt Date: 20080912
  Transmission Date: 20090109
  Serious: Yes (Death, Hospitalization)
  Sender: FDA-Public Use
  Company Number: 2008SP002178

PATIENT
  Age: 79 Year
  Sex: Female

DRUGS (2)
  1. XOPENEX [Suspect]
     Dosage: INHALATION
     Route: 055
     Dates: start: 20030801, end: 20030813
  2. ATIVAN [Concomitant]

REACTIONS (1)
  - DEATH [None]
